FAERS Safety Report 15020179 (Version 1)
Quarter: 2018Q2

REPORT INFORMATION
  Report Type: Spontaneous
  Country: GB (occurrence: GB)
  Receive Date: 20180618
  Receipt Date: 20180618
  Transmission Date: 20180711
  Serious: Yes (Other)
  Sender: FDA-Public Use
  Company Number: GB-TEVA-2018-GB-907158

PATIENT
  Age: 37 Year
  Sex: Female
  Weight: 76 kg

DRUGS (6)
  1. CASSIA [Concomitant]
     Dosage: AT NIGHT
     Route: 065
     Dates: start: 20161222, end: 20180212
  2. PRIADEL [Concomitant]
     Active Substance: LITHIUM
     Dosage: TAKE ONE AT NIGHT WITH TWO 400MG (1000MGS) TOTAL
     Route: 065
     Dates: start: 20180418
  3. COCODAMOL [Suspect]
     Active Substance: ACETAMINOPHEN\CODEINE PHOSPHATE
     Route: 065
     Dates: start: 20180418
  4. HALOPERIDOL. [Concomitant]
     Active Substance: HALOPERIDOL
     Dosage: 2 DOSAGE FORMS DAILY; ONE AT LUCH TIME ONE AT TE...
     Route: 065
     Dates: start: 20180418
  5. PROCYCLIDINE [Concomitant]
     Active Substance: PROCYCLIDINE
     Dosage: 2 DOSAGE FORMS DAILY; TAKE ONE TWICE DAILY ONE AT LUNCH TIME ONE AT T...
     Route: 065
     Dates: start: 20180418
  6. CLONAZEPAM. [Concomitant]
     Active Substance: CLONAZEPAM
     Dosage: 2 DOSAGE FORMS DAILY; ONE AT LUNCH ONE AT TEA TIME
     Route: 065
     Dates: start: 20180418

REACTIONS (1)
  - Hallucination [Unknown]

NARRATIVE: CASE EVENT DATE: 20180418
